FAERS Safety Report 9701739 (Version 1)
Quarter: 2013Q4

REPORT INFORMATION
  Report Type: Spontaneous
  Country: US (occurrence: US)
  Receive Date: 20131121
  Receipt Date: 20131121
  Transmission Date: 20140711
  Serious: Yes (Other)
  Sender: FDA-Public Use
  Company Number: US-ASTRAZENECA-2013SE84416

PATIENT
  Age: 81 Year
  Sex: Female
  Weight: 71.7 kg

DRUGS (13)
  1. NEXIUM [Suspect]
     Indication: GASTROOESOPHAGEAL REFLUX DISEASE
     Route: 048
     Dates: start: 2001, end: 2012
  2. PRILOSEC [Suspect]
     Indication: GASTROOESOPHAGEAL REFLUX DISEASE
     Route: 048
     Dates: start: 201310
  3. LISINOPRIL [Suspect]
     Indication: BLOOD PRESSURE ABNORMAL
     Dosage: DAILY
     Route: 048
     Dates: start: 2010, end: 2013
  4. HERCEPTIN [Concomitant]
     Indication: BREAST CANCER
     Route: 042
     Dates: start: 201301
  5. COUMADIN [Concomitant]
     Indication: THROMBOSIS
     Dosage: 6 MG SUNDAYS WEEK
     Route: 048
     Dates: start: 2004
  6. CENTRUM SILVER [Concomitant]
     Indication: SUPPLEMENTATION THERAPY
     Route: 048
     Dates: start: 2007
  7. CALTRATE PLUS D [Concomitant]
     Indication: SUPPLEMENTATION THERAPY
     Route: 048
     Dates: start: 2007
  8. OSTEOBIFLEX [Concomitant]
     Indication: BONE DISORDER
     Route: 048
  9. FISH OIL [Concomitant]
     Indication: DRY EYE
     Dosage: UNKNOWN TID
     Route: 048
     Dates: start: 2003
  10. SYSTANE [Concomitant]
     Indication: DRY EYE
     Dates: start: 2008
  11. SELENIUM [Concomitant]
     Indication: SUPPLEMENTATION THERAPY
     Route: 048
     Dates: start: 2005
  12. BIOTIN [Concomitant]
     Indication: ALOPECIA
     Route: 048
     Dates: start: 2009
  13. PREVACID [Concomitant]

REACTIONS (11)
  - Breast cancer female [Unknown]
  - Thrombosis [Unknown]
  - Cataract [Unknown]
  - Femur fracture [Unknown]
  - Blood pressure abnormal [Unknown]
  - Dyspepsia [Unknown]
  - Nausea [Unknown]
  - Eructation [Unknown]
  - Flatulence [Unknown]
  - Alopecia [Unknown]
  - Drug ineffective [Unknown]
